FAERS Safety Report 9417522 (Version 1)
Quarter: 2013Q3

REPORT INFORMATION
  Report Type: Spontaneous
  Country: US (occurrence: US)
  Receive Date: 20130724
  Receipt Date: 20130724
  Transmission Date: 20140515
  Serious: Yes (Other)
  Sender: FDA-Public Use
  Company Number: US-BRISTOL-MYERS SQUIBB COMPANY-19042969

PATIENT
  Age: 54 Year
  Sex: Female

DRUGS (8)
  1. ELIQUIS [Suspect]
     Dosage: 13 TAB
  2. SINTROM [Suspect]
  3. SIMVASTATIN [Concomitant]
  4. CELEXA [Concomitant]
  5. CLONOPIN [Concomitant]
  6. ESTAZOLAM [Concomitant]
  7. ULTRACET [Concomitant]
     Indication: ANALGESIC THERAPY
  8. RELAFEN [Concomitant]
     Indication: ANALGESIC THERAPY

REACTIONS (4)
  - Haematuria [Unknown]
  - Malaise [Unknown]
  - Nausea [Unknown]
  - Headache [Unknown]
